FAERS Safety Report 11437739 (Version 1)
Quarter: 2015Q3

REPORT INFORMATION
  Report Type: Spontaneous
  Country: US (occurrence: US)
  Receive Date: 20150831
  Receipt Date: 20150831
  Transmission Date: 20151125
  Serious: No
  Sender: FDA-Public Use
  Company Number: US-GLAXOSMITHKLINE-US2015GSK123632

PATIENT
  Age: 25 Year
  Sex: Male

DRUGS (11)
  1. VOTRIENT [Suspect]
     Active Substance: PAZOPANIB HYDROCHLORIDE
     Indication: SOFT TISSUE SARCOMA
  2. LEVOTHYROXINE. [Concomitant]
     Active Substance: LEVOTHYROXINE
  3. MORPHINE [Concomitant]
     Active Substance: MORPHINE
  4. OXYCODONE [Concomitant]
     Active Substance: OXYCODONE
  5. LORAZEPAM. [Concomitant]
     Active Substance: LORAZEPAM
  6. HYDROMORPHONE [Concomitant]
     Active Substance: HYDROMORPHONE
  7. CLOTRIMAZOLE. [Concomitant]
     Active Substance: CLOTRIMAZOLE
  8. GABAPENTIN. [Concomitant]
     Active Substance: GABAPENTIN
  9. MIRTAZAPINE. [Concomitant]
     Active Substance: MIRTAZAPINE
  10. VOTRIENT [Suspect]
     Active Substance: PAZOPANIB HYDROCHLORIDE
     Indication: BRAIN NEOPLASM MALIGNANT
     Dosage: 600 MG, QD
     Route: 048
  11. DICYCLOMINE [Concomitant]
     Active Substance: DICYCLOMINE HYDROCHLORIDE

REACTIONS (1)
  - Neoplasm [Unknown]

NARRATIVE: CASE EVENT DATE: 20150804
